FAERS Safety Report 5842745-2 (Version None)
Quarter: 2008Q3

REPORT INFORMATION
  Report Type: 
  Country: None (occurrence: None)
  Receive Date: 20080808
  Receipt Date: 20070807
  Transmission Date: 20090109
  Serious: Yes (Life-Threatening, Hospitalization, Other)
  Sender: FDA-Public Use
  Company Number: 2007US000511

PATIENT
  Age: 57 Year
  Sex: Female
  Weight: 90.2 kg

DRUGS (3)
  1. ADENOSCAN [Suspect]
     Indication: SCAN MYOCARDIAL PERFUSION
     Dates: start: 20061026
  2. METOPROLOL TARTRATE [Concomitant]
  3. ZYRTEC       (CETIRIZINE HYDROCHLORIDE)     FORMULATION UKNOWN [Concomitant]

REACTIONS (20)
  - ABSCESS [None]
  - ARTHRALGIA [None]
  - CELLULITIS [None]
  - CHEST PAIN [None]
  - CORONARY ARTERY DISEASE [None]
  - DRUG HYPERSENSITIVITY [None]
  - ELECTROCARDIOGRAM T WAVE ABNORMAL [None]
  - EPIGASTRIC DISCOMFORT [None]
  - FOREIGN BODY TRAUMA [None]
  - HEADACHE [None]
  - HYPOAESTHESIA [None]
  - HYPOPHAGIA [None]
  - INSOMNIA [None]
  - MUSCLE SPASMS [None]
  - MYALGIA [None]
  - ORAL HERPES [None]
  - PAIN [None]
  - PAIN IN JAW [None]
  - SCREAMING [None]
  - TOOTH FRACTURE [None]
